FAERS Safety Report 8842069 (Version 1)
Quarter: 2012Q4

REPORT INFORMATION
  Report Type: 
  Country: US (occurrence: US)
  Receive Date: 20121016
  Receipt Date: 20121016
  Transmission Date: 20130627
  Serious: Yes (Other)
  Sender: FDA-Public Use
  Company Number: US-SHIRE-ALL1-2012-04859

PATIENT
  Age: 8 Year
  Sex: Male

DRUGS (3)
  1. INTUNIV [Suspect]
     Indication: ATTENTION DEFICIT/HYPERACTIVITY DISORDER
     Dosage: 1 mg, 1x/day:qd
     Route: 048
     Dates: start: 201205, end: 201207
  2. INTUNIV [Suspect]
     Dosage: 2 mg, 1x/day:qd
     Route: 048
     Dates: start: 201207, end: 201209
  3. ADDERALL [Concomitant]
     Indication: ATTENTION DEFICIT/HYPERACTIVITY DISORDER
     Dosage: 20 mg, Unknown
     Route: 048

REACTIONS (2)
  - Hallucination, visual [Recovered/Resolved]
  - Weight increased [Unknown]
